FAERS Safety Report 5608942-6 (Version None)
Quarter: 2008Q1

REPORT INFORMATION
  Report Type: 
  Country: None (occurrence: None)
  Receive Date: 20080129
  Receipt Date: 20080129
  Transmission Date: 20080703
  Serious: Yes (Death)
  Sender: FDA-Public Use
  Company Number: None

PATIENT
  Sex: Male
  Weight: 68 kg

DRUGS (2)
  1. RETAVASE [Suspect]
     Indication: ARTERIAL OCCLUSIVE DISEASE
     Dosage: 1 UNIT/HR CONTINUOUS IV DRIP
     Route: 041
     Dates: start: 20080124, end: 20080125
  2. HEPARIN [Suspect]
     Indication: ARTERIAL OCCLUSIVE DISEASE
     Dosage: 500 UNITS/HR CONTINUOUS IV DRIP
     Route: 041
     Dates: start: 20080124, end: 20080125

REACTIONS (4)
  - ARTERIAL DISORDER [None]
  - CARDIO-RESPIRATORY ARREST [None]
  - HAEMORRHAGE INTRACRANIAL [None]
  - PNEUMONIA [None]
